FAERS Safety Report 10046740 (Version 1)
Quarter: 2014Q1

REPORT INFORMATION
  Report Type: Spontaneous
  Country: US (occurrence: None)
  Receive Date: 20140328
  Receipt Date: 20140328
  Transmission Date: 20141002
  Serious: Yes (Hospitalization)
  Sender: FDA-Public Use
  Company Number: None

PATIENT
  Age: 15 Year
  Sex: Male
  Weight: 88.45 kg

DRUGS (1)
  1. RISPERIDONE [Suspect]
     Indication: PSYCHOTIC DISORDER
     Route: 048
     Dates: start: 20130504, end: 20130604

REACTIONS (3)
  - Gynaecomastia [None]
  - Psychotic disorder [None]
  - Condition aggravated [None]
